FAERS Safety Report 6865196-0 (Version None)
Quarter: 2010Q3

REPORT INFORMATION
  Report Type: 
  Country: None (occurrence: None)
  Receive Date: 20100721
  Receipt Date: 20080510
  Transmission Date: 20110219
  Serious: No
  Sender: FDA-Public Use
  Company Number: US-PFIZER INC-2008033038

PATIENT
  Sex: Male
  Weight: 65.9 kg

DRUGS (2)
  1. CHANTIX [Suspect]
     Indication: SMOKING CESSATION THERAPY
     Route: 048
     Dates: start: 20080325, end: 20080408
  2. VITAMINS [Concomitant]

REACTIONS (2)
  - ASTHENOPIA [None]
  - VISION BLURRED [None]
